FAERS Safety Report 12845135 (Version 2)
Quarter: 2016Q4

REPORT INFORMATION
  Report Type: Report from Study
  Country: US (occurrence: US)
  Receive Date: 20161013
  Receipt Date: 20161125
  Transmission Date: 20170207
  Serious: Yes (Hospitalization)
  Sender: FDA-Public Use
  Company Number: US-B.I. PHARMACEUTICALS,INC./RIDGEFIELD-2016-BI-44223BP

PATIENT
  Age: 73 Year
  Sex: Female
  Weight: 103.42 kg

DRUGS (2)
  1. OFEV [Suspect]
     Active Substance: NINTEDANIB
     Dosage: STRENGTH: 150 MG
     Route: 048
     Dates: end: 20160829
  2. OFEV [Suspect]
     Active Substance: NINTEDANIB
     Indication: IDIOPATHIC PULMONARY FIBROSIS
     Dosage: STRENGTH: 150 MG
     Route: 048
     Dates: start: 20160512, end: 20160818

REACTIONS (5)
  - Internal haemorrhage [Unknown]
  - Haemolysis [Recovered/Resolved]
  - Diarrhoea [Recovered/Resolved with Sequelae]
  - Weight decreased [Unknown]
  - Weight decreased [Not Recovered/Not Resolved]

NARRATIVE: CASE EVENT DATE: 20160817
